FAERS Safety Report 4491489-0 (Version None)
Quarter: 2004Q4

REPORT INFORMATION
  Report Type: 
  Country: None (occurrence: None)
  Receive Date: 20041029
  Receipt Date: 20041027
  Transmission Date: 20050328
  Serious: Yes (Death)
  Sender: FDA-Public Use
  Company Number: S04-USA-05897-01

PATIENT
  Age: 22 Year
  Sex: Male

DRUGS (1)
  1. LEXAPRO [Suspect]
     Indication: DEPRESSION
     Dosage: 10 MG QD PO
     Route: 048
     Dates: start: 20030821, end: 20030910

REACTIONS (3)
  - ACCIDENTAL OVERDOSE [None]
  - CARDIOMEGALY [None]
  - ROAD TRAFFIC ACCIDENT [None]
